FAERS Safety Report 7132326-5 (Version None)
Quarter: 2010Q4

REPORT INFORMATION
  Report Type: 
  Country: None (occurrence: None)
  Receive Date: 20101202
  Receipt Date: 20101122
  Transmission Date: 20110411
  Serious: Yes (Other)
  Sender: FDA-Public Use
  Company Number: US-NAPPMUNDI-USA-2010-0055946

PATIENT
  Sex: Female

DRUGS (1)
  1. OXYCONTIN [Suspect]
     Indication: PAIN
     Dosage: 40 MG, QID
     Route: 048
     Dates: start: 20101104

REACTIONS (9)
  - BEDRIDDEN [None]
  - DRUG EFFECT DECREASED [None]
  - DRUG INEFFECTIVE [None]
  - DYSARTHRIA [None]
  - HYPERSOMNIA [None]
  - INCOHERENT [None]
  - MOBILITY DECREASED [None]
  - PAIN [None]
  - VISION BLURRED [None]
